FAERS Safety Report 19960416 (Version 1)
Quarter: 2021Q4

REPORT INFORMATION
  Report Type: Spontaneous
  Country: US (occurrence: US)
  Receive Date: 20211015
  Receipt Date: 20211015
  Transmission Date: 20220303
  Serious: No
  Sender: FDA-Public Use
  Company Number: US-COLLEGIUM PHARMACEUTICAL, INC.-2020CGM00251

PATIENT
  Age: 78 Year
  Sex: Female
  Weight: 58.96 kg

DRUGS (13)
  1. NUCYNTA ER [Suspect]
     Active Substance: TAPENTADOL HYDROCHLORIDE
     Indication: Bladder pain
     Dosage: 50 MG, 2X/DAY
     Route: 048
     Dates: start: 20200926, end: 20200929
  2. NUCYNTA ER [Suspect]
     Active Substance: TAPENTADOL HYDROCHLORIDE
     Dosage: 100 MG, 2X/DAY
     Route: 048
     Dates: start: 20200929
  3. PREGABALIN [Concomitant]
     Active Substance: PREGABALIN
     Dosage: UNK
     Dates: end: 20200928
  4. ELIQUIS [Concomitant]
     Active Substance: APIXABAN
  5. UNSPECIFIED INGREDIENT [Concomitant]
     Active Substance: UNSPECIFIED INGREDIENT
  6. SYNTHROID [Concomitant]
     Active Substance: LEVOTHYROXINE SODIUM
  7. AMLODIPINE [Concomitant]
     Active Substance: AMLODIPINE BESYLATE
  8. LIPITOR [Concomitant]
     Active Substance: ATORVASTATIN CALCIUM
  9. DEXILANT [Concomitant]
     Active Substance: DEXLANSOPRAZOLE
  10. TRILIPIX [Concomitant]
     Active Substance: FENOFIBRIC ACID
  11. DILTIAZEM [Concomitant]
     Active Substance: DILTIAZEM
  12. ALENDRONATE [Concomitant]
     Active Substance: ALENDRONATE SODIUM
     Dosage: UNK, 1X/WEEK
  13. ESTENIDE [Concomitant]

REACTIONS (2)
  - Bladder pain [Not Recovered/Not Resolved]
  - Drug ineffective [Not Recovered/Not Resolved]

NARRATIVE: CASE EVENT DATE: 20200901
